FAERS Safety Report 23637457 (Version 2)
Quarter: 2024Q4

REPORT INFORMATION
  Report Type: Spontaneous
  Country: JP (occurrence: JP)
  Receive Date: 20240315
  Receipt Date: 20241231
  Transmission Date: 20250114
  Serious: Yes (Other)
  Sender: ROCHE
  Company Number: JP-CHUGAI-2024008208

PATIENT
  Age: 7 Decade
  Sex: Female

DRUGS (1)
  1. HEMLIBRA [Suspect]
     Active Substance: EMICIZUMAB-KXWH
     Indication: Acquired haemophilia
     Dosage: 1.5 MILLIGRAM/KILOGRAM, ONCE/WEEK
     Route: 058
     Dates: start: 20240221

REACTIONS (1)
  - Rectal ulcer [Unknown]

NARRATIVE: CASE EVENT DATE: 20240301
